FAERS Safety Report 5688851-7 (Version None)
Quarter: 2008Q1

REPORT INFORMATION
  Report Type: 
  Country: None (occurrence: None)
  Receive Date: 20080331
  Receipt Date: 20040614
  Transmission Date: 20080703
  Serious: Yes (Death, Hospitalization, Other)
  Sender: FDA-Public Use
  Company Number: HU-ROCHE-371092

PATIENT
  Age: 47 Year
  Sex: Male
  Weight: 83 kg

DRUGS (5)
  1. XELODA [Suspect]
     Indication: METASTASES TO LUNG
     Dosage: STRENGTH 150 MG, REGIMEN 2 X 3 DAY
     Route: 048
     Dates: start: 20040519, end: 20040602
  2. ZANTAC [Concomitant]
     Indication: PROPHYLAXIS
     Dates: start: 20040520, end: 20040604
  3. MILGAMMA [Concomitant]
     Indication: PARAESTHESIA
     Dates: start: 20040520, end: 20040604
  4. ZOFRAN [Concomitant]
     Indication: NAUSEA
     Dates: start: 20040520, end: 20040525
  5. SALSOL [Concomitant]
     Dosage: DOSAGE REGIMEN REPORTED AS 4X.
     Route: 042
     Dates: start: 20040604, end: 20040610

REACTIONS (8)
  - ABDOMINAL PAIN [None]
  - ABDOMINAL RIGIDITY [None]
  - DEATH [None]
  - DIARRHOEA [None]
  - LEUKOPENIA [None]
  - MECHANICAL ILEUS [None]
  - NAUSEA [None]
  - THROMBOCYTOPENIA [None]
